FAERS Safety Report 9004826 (Version 2)
Quarter: 2013Q2

REPORT INFORMATION
  Report Type: Spontaneous
  Country: US (occurrence: None)
  Receive Date: 20121226
  Receipt Date: 20130507
  Transmission Date: 20140414
  Serious: Yes (Other)
  Sender: FDA-Public Use
  Company Number: ADR-2012-02271

PATIENT
  Age: 71 Year
  Sex: Female

DRUGS (1)
  1. BACLOFEN INTRATHECAL [Suspect]
     Indication: POST LAMINECTOMY SYNDROME

REACTIONS (4)
  - Overdose [None]
  - Drug dispensing error [None]
  - Product label issue [None]
  - Drug dispensing error [None]
